FAERS Safety Report 14018427 (Version 1)
Quarter: 2017Q3

REPORT INFORMATION
  Report Type: Spontaneous
  Country: US (occurrence: US)
  Receive Date: 20170927
  Receipt Date: 20170927
  Transmission Date: 20171128
  Serious: Yes (Life-Threatening, Disabling)
  Sender: FDA-Public Use
  Company Number: None

PATIENT
  Age: 50 Year
  Sex: Male
  Weight: 94.5 kg

DRUGS (4)
  1. SIMVASTATIN. [Suspect]
     Active Substance: SIMVASTATIN
     Indication: BLOOD CHOLESTEROL INCREASED
     Dosage: ?          QUANTITY:1 TABLET(S);?
     Route: 048
     Dates: start: 20150209, end: 20170917
  2. OXYCODON [Concomitant]
     Active Substance: OXYCODONE
  3. ADVIL [Concomitant]
     Active Substance: IBUPROFEN
  4. TUMS [Concomitant]
     Active Substance: CALCIUM CARBONATE

REACTIONS (11)
  - Irritability [None]
  - Asthenia [None]
  - Headache [None]
  - Insomnia [None]
  - Dyspnoea [None]
  - Dizziness [None]
  - Musculoskeletal pain [None]
  - Cognitive disorder [None]
  - Pain in extremity [None]
  - Myalgia [None]
  - Blood glucose increased [None]

NARRATIVE: CASE EVENT DATE: 20161130
